FAERS Safety Report 19945736 (Version 1)
Quarter: 2021Q4

REPORT INFORMATION
  Report Type: Spontaneous
  Country: DE (occurrence: DE)
  Receive Date: 20211012
  Receipt Date: 20211012
  Transmission Date: 20220303
  Serious: Yes (Other)
  Sender: FDA-Public Use
  Company Number: DE-BOEHRINGERINGELHEIM-2021-BI-131797

PATIENT
  Age: 74 Year
  Sex: Male

DRUGS (1)
  1. SPIRIVA [Suspect]
     Active Substance: TIOTROPIUM BROMIDE MONOHYDRATE
     Indication: Product used for unknown indication

REACTIONS (7)
  - Renal disorder [Unknown]
  - Pneumothorax [Unknown]
  - Skin injury [Unknown]
  - Glaucoma [Unknown]
  - Fluid retention [Unknown]
  - Cataract [Unknown]
  - Diabetes mellitus [Unknown]
